FAERS Safety Report 24137540 (Version 3)
Quarter: 2024Q4

REPORT INFORMATION
  Report Type: Spontaneous
  Country: JP (occurrence: JP)
  Receive Date: 20240725
  Receipt Date: 20241003
  Transmission Date: 20250115
  Serious: Yes (Hospitalization)
  Sender: BAYER
  Company Number: JP-BAYER-2024A106933

PATIENT
  Age: 70 Year
  Sex: Male

DRUGS (3)
  1. NUBEQA [Suspect]
     Active Substance: DAROLUTAMIDE
     Indication: Prostate cancer metastatic
     Dosage: DAILY DOSE 1200 MG
  2. DOCETAXEL [Suspect]
     Active Substance: DOCETAXEL
     Indication: Prostate cancer metastatic
     Dosage: DAILY DOSE 70 MG/M2
  3. PEGFILGRASTIM [Concomitant]
     Active Substance: PEGFILGRASTIM
     Dosage: 3.6MG

REACTIONS (7)
  - Neutrophil count decreased [Recovering/Resolving]
  - Myalgia [Recovering/Resolving]
  - C-reactive protein increased [Recovering/Resolving]
  - C-reactive protein increased [None]
  - Malaise [None]
  - Myalgia [None]
  - Infection [None]
